FAERS Safety Report 8247750-7 (Version None)
Quarter: 2012Q1

REPORT INFORMATION
  Report Type: 
  Country: None (occurrence: None)
  Receive Date: 20120330
  Receipt Date: 20120322
  Transmission Date: 20120608
  Serious: Yes (Life-Threatening, Hospitalization)
  Sender: FDA-Public Use
  Company Number: FR-GLAXOSMITHKLINE-B0781917A

PATIENT
  Sex: Female
  Weight: 49.9 kg

DRUGS (5)
  1. ANAFRANIL [Concomitant]
     Route: 065
  2. TERCIAN [Concomitant]
  3. ARIXTRA [Suspect]
     Indication: OEDEMA PERIPHERAL
     Dosage: 2.5MG PER DAY
     Route: 058
     Dates: start: 20120106, end: 20120115
  4. PLAVIX [Concomitant]
     Route: 065
  5. OMEPRAZOLE [Concomitant]
     Route: 065

REACTIONS (2)
  - SUBDURAL HAEMATOMA [None]
  - OFF LABEL USE [None]
